FAERS Safety Report 7909629-7 (Version None)
Quarter: 2011Q4

REPORT INFORMATION
  Report Type: 
  Country: None (occurrence: None)
  Receive Date: 20111111
  Receipt Date: 20111102
  Transmission Date: 20120403
  Serious: Yes (Hospitalization)
  Sender: FDA-Public Use
  Company Number: US-GLAXOSMITHKLINE-A0905944A

PATIENT
  Age: 57 Year
  Sex: Male
  Weight: 78.6 kg

DRUGS (11)
  1. PROGRAF [Concomitant]
  2. SENSIPAR [Concomitant]
  3. AVANDIA [Suspect]
     Indication: DIABETES MELLITUS
     Dosage: 8MG TWICE PER DAY
     Route: 048
     Dates: start: 20030101, end: 20070701
  4. LIPITOR [Concomitant]
  5. ZETIA [Concomitant]
  6. TRICOR [Concomitant]
  7. NORVASC [Concomitant]
  8. MYCOPHENOLATE MOFETIL (CELLCEPT) [Concomitant]
  9. CARDURA [Concomitant]
  10. TOPROL-XL [Concomitant]
  11. PROSCAR [Concomitant]

REACTIONS (4)
  - CARDIAC FAILURE CONGESTIVE [None]
  - RENAL FAILURE CHRONIC [None]
  - ANGINA UNSTABLE [None]
  - MYOCARDIAL INFARCTION [None]
